FAERS Safety Report 4479177-8 (Version None)
Quarter: 2004Q4

REPORT INFORMATION
  Report Type: 
  Country: None (occurrence: None)
  Receive Date: 20041019
  Receipt Date: 20041019
  Transmission Date: 20050328
  Serious: Yes (Other)
  Sender: FDA-Public Use
  Company Number: None

PATIENT
  Age: 64 Year
  Sex: Male
  Weight: 86.18 kg

DRUGS (1)
  1. MORPHINE [Suspect]
     Dosage: 1 MG IV
     Route: 042
     Dates: start: 20041016, end: 20041018

REACTIONS (1)
  - RASH PRURITIC [None]
